FAERS Safety Report 24565652 (Version 1)
Quarter: 2024Q4

REPORT INFORMATION
  Report Type: Spontaneous
  Country: US (occurrence: None)
  Receive Date: 20241029
  Receipt Date: 20241029
  Transmission Date: 20250115
  Serious: Yes (Other)
  Sender: Public
  Company Number: None

PATIENT
  Age: 5 Month
  Sex: Female
  Weight: 7.31 kg

DRUGS (1)
  1. BEYFORTUS [Suspect]
     Active Substance: NIRSEVIMAB-ALIP
     Dosage: FREQUENCY : ONCE;?
     Route: 030

REACTIONS (3)
  - Ocular hyperaemia [None]
  - Lacrimation increased [None]
  - Rash maculo-papular [None]

NARRATIVE: CASE EVENT DATE: 20241029
